FAERS Safety Report 16683287 (Version 1)
Quarter: 2019Q3

REPORT INFORMATION
  Report Type: Spontaneous
  Country: US (occurrence: US)
  Receive Date: 20190807
  Receipt Date: 20190807
  Transmission Date: 20191004
  Serious: Yes (Hospitalization)
  Sender: FDA-Public Use
  Company Number: None

PATIENT
  Age: 64 Year
  Sex: Male

DRUGS (13)
  1. PREDNISONE. [Concomitant]
     Active Substance: PREDNISONE
  2. DICLOFENAC [Concomitant]
     Active Substance: DICLOFENAC
  3. GLIPIZIDE ER [Concomitant]
     Active Substance: GLIPIZIDE
  4. METFORMIN [Concomitant]
     Active Substance: METFORMIN HYDROCHLORIDE
  5. FLUOXETINE [Concomitant]
     Active Substance: FLUOXETINE HYDROCHLORIDE
  6. ALFUZOSIN [Concomitant]
     Active Substance: ALFUZOSIN
  7. OLMESA MEDOX [Concomitant]
  8. PIOGLITAZONE. [Concomitant]
     Active Substance: PIOGLITAZONE
  9. FISH OIL [Concomitant]
     Active Substance: FISH OIL
  10. TRAMADOL. [Concomitant]
     Active Substance: TRAMADOL
  11. VITAMIN C [Concomitant]
     Active Substance: ASCORBIC ACID
  12. XELJANZ [Suspect]
     Active Substance: TOFACITINIB CITRATE
     Route: 048
     Dates: start: 20190318
  13. ROSUVASTATIN. [Concomitant]
     Active Substance: ROSUVASTATIN

REACTIONS (2)
  - Spinal operation [None]
  - Therapy cessation [None]

NARRATIVE: CASE EVENT DATE: 20190725
